FAERS Safety Report 4533046-3 (Version None)
Quarter: 2004Q4

REPORT INFORMATION
  Report Type: 
  Country: None (occurrence: None)
  Receive Date: 20041210
  Receipt Date: 20040825
  Transmission Date: 20050328
  Serious: No
  Sender: FDA-Public Use
  Company Number: 2004-00403

PATIENT
  Age: 66 Year
  Sex: Female
  Weight: 99.3 kg

DRUGS (2)
  1. VELCADE [Suspect]
     Indication: MULTIPLE MYELOMA
     Dosage: 2.50 MG, INTRAVENOUS
     Route: 042
     Dates: start: 20040727, end: 20040806
  2. DEXAMETHASONE [Concomitant]

REACTIONS (1)
  - OEDEMA PERIPHERAL [None]
